FAERS Safety Report 21952091 (Version 1)
Quarter: 2023Q1

REPORT INFORMATION
  Report Type: Report from Study
  Country: US (occurrence: US)
  Receive Date: 20230203
  Receipt Date: 20230203
  Transmission Date: 20230417
  Serious: No
  Sender: FDA-Public Use
  Company Number: US-EXELIXIS-CABO-22049450

PATIENT
  Sex: Female

DRUGS (5)
  1. CABOMETYX [Suspect]
     Active Substance: CABOZANTINIB S-MALATE
     Indication: Osteosarcoma
     Dosage: 60 MG, QD
     Dates: start: 20220203
  2. CABOMETYX [Suspect]
     Active Substance: CABOZANTINIB S-MALATE
     Indication: Chondrosarcoma
  3. METOPROLOL [Concomitant]
     Active Substance: METOPROLOL
  4. VITAMIN D3 [Concomitant]
     Active Substance: CHOLECALCIFEROL
  5. SENOKOT [Concomitant]
     Active Substance: SENNOSIDES

REACTIONS (8)
  - Neuropathy peripheral [Unknown]
  - Glossitis [Unknown]
  - Asthenia [Unknown]
  - Vomiting [Unknown]
  - Taste disorder [Unknown]
  - Constipation [Unknown]
  - Blood pressure increased [Unknown]
  - Off label use [Unknown]
